FAERS Safety Report 22035403 (Version 30)
Quarter: 2025Q3

REPORT INFORMATION
  Report Type: Spontaneous
  Country: IN (occurrence: IN)
  Receive Date: 20230224
  Receipt Date: 20250923
  Transmission Date: 20251021
  Serious: Yes (Other)
  Sender: PFIZER
  Company Number: IN-PFIZER INC-2019366383

PATIENT
  Age: 43 Year
  Sex: Female

DRUGS (20)
  1. PALBOCICLIB [Suspect]
     Active Substance: PALBOCICLIB
     Indication: Breast cancer metastatic
     Route: 048
     Dates: start: 20180212, end: 2018
  2. PALBOCICLIB [Suspect]
     Active Substance: PALBOCICLIB
     Route: 048
     Dates: start: 20181211
  3. PALBOCICLIB [Suspect]
     Active Substance: PALBOCICLIB
     Route: 048
  4. PALBOCICLIB [Suspect]
     Active Substance: PALBOCICLIB
     Route: 048
     Dates: start: 20250223
  5. PALBOCICLIB [Suspect]
     Active Substance: PALBOCICLIB
     Dosage: 125 MG, 1X/DAY
     Route: 048
  6. PALBOCICLIB [Suspect]
     Active Substance: PALBOCICLIB
     Route: 048
  7. PALBOCICLIB [Suspect]
     Active Substance: PALBOCICLIB
     Dosage: 125 MG
     Route: 048
  8. PALBOCICLIB [Suspect]
     Active Substance: PALBOCICLIB
     Route: 048
  9. EXEMESTANE [Suspect]
     Active Substance: EXEMESTANE
     Indication: Breast cancer metastatic
     Dosage: 25 MG, 1X/DAY
     Dates: start: 201812
  10. ZOLEDRONIC ACID [Concomitant]
     Active Substance: ZOLEDRONIC ACID
     Indication: Pelvic pain
     Dates: start: 20181128
  11. GOSERELIN [Concomitant]
     Active Substance: GOSERELIN
     Route: 058
     Dates: start: 20181128, end: 20190402
  12. GOSERELIN [Concomitant]
     Active Substance: GOSERELIN
     Route: 058
  13. MEGANEURON OD PLUS [Concomitant]
     Dosage: UNK, 1X/DAY
  14. DOMSTAL [Concomitant]
     Indication: Nausea
  15. DOMSTAL [Concomitant]
     Indication: Vomiting
  16. SHELCAL OS [Concomitant]
     Dosage: 500 MG, 2X/DAY
  17. SHELCAL OS [Concomitant]
     Dosage: 1 TAB TWICE A DAY
  18. EFCORLIN [Concomitant]
     Route: 042
  19. ZOLEDRONIC ACID [Concomitant]
     Active Substance: ZOLEDRONIC ACID
     Route: 042
  20. CALCIUM [Concomitant]
     Active Substance: CALCIUM

REACTIONS (37)
  - Neutropenia [Recovering/Resolving]
  - Cytopenia [Unknown]
  - Mycobacterial infection [Unknown]
  - Lymphadenopathy [Unknown]
  - Vision blurred [Unknown]
  - COVID-19 [Recovered/Resolved]
  - Haemoglobin decreased [Unknown]
  - Red blood cell count decreased [Unknown]
  - Haematocrit decreased [Unknown]
  - Mean cell volume increased [Unknown]
  - Mean cell haemoglobin increased [Unknown]
  - Red cell distribution width increased [Unknown]
  - Procalcitonin decreased [Unknown]
  - Platelet distribution width increased [Unknown]
  - Anxiety [Unknown]
  - Stress [Unknown]
  - White blood cell count decreased [Unknown]
  - Lymphocyte percentage increased [Unknown]
  - Blood potassium abnormal [Unknown]
  - Blood chloride abnormal [Unknown]
  - Upper respiratory tract infection [Unknown]
  - Asthenia [Unknown]
  - Pain [Unknown]
  - Spondyloarthropathy [Unknown]
  - Bone marrow oedema [Unknown]
  - Vertebral osteophyte [Unknown]
  - Intervertebral disc degeneration [Unknown]
  - Intervertebral disc protrusion [Unknown]
  - Radiculopathy [Unknown]
  - Osteosclerosis [Unknown]
  - Diarrhoea [Unknown]
  - Osteopenia [Unknown]
  - Lymphadenitis [Unknown]
  - Hypertransaminasaemia [Unknown]
  - Off label use [Unknown]
  - Product use issue [Unknown]
  - Off label use [Unknown]

NARRATIVE: CASE EVENT DATE: 20181212
